FAERS Safety Report 18939499 (Version 3)
Quarter: 2021Q2

REPORT INFORMATION
  Report Type: Spontaneous
  Country: US (occurrence: US)
  Receive Date: 20210225
  Receipt Date: 20210406
  Transmission Date: 20210717
  Serious: No
  Sender: FDA-Public Use
  Company Number: US-SA-2021SA050037

PATIENT
  Age: 49 Year
  Sex: Female

DRUGS (1)
  1. ALLEGRA?D 24 HOUR [Suspect]
     Active Substance: FEXOFENADINE HYDROCHLORIDE\PSEUDOEPHEDRINE HYDROCHLORIDE
     Indication: HYPERSENSITIVITY
     Dosage: 1 DF, QD (YEARS THEN DISCONTINUED 3 WEEKS AGO)
     Route: 065

REACTIONS (4)
  - Product odour abnormal [Unknown]
  - Hypersensitivity [Recovered/Resolved]
  - Drug ineffective [Unknown]
  - Product taste abnormal [Unknown]
